FAERS Safety Report 9156459 (Version 1)
Quarter: 2013Q1

REPORT INFORMATION
  Report Type: Spontaneous
  Country: US (occurrence: None)
  Receive Date: 20130308
  Receipt Date: 20130308
  Transmission Date: 20140127
  Serious: Yes (Hospitalization)
  Sender: FDA-Public Use
  Company Number: None

PATIENT
  Age: 71 Year
  Sex: Male
  Weight: 104 kg

DRUGS (7)
  1. SPRYCEL (CML) TABS 50 MG [Suspect]
     Indication: CHRONIC MYELOID LEUKAEMIA
     Dosage: 50MG DAILY PO
     Route: 048
     Dates: start: 20121226, end: 20130305
  2. ALLOPURINOL [Concomitant]
  3. B-12 [Concomitant]
  4. DIGOXIN [Concomitant]
  5. GABAPENTIN [Concomitant]
  6. LASIX [Concomitant]
  7. LISINOPRIL [Concomitant]

REACTIONS (4)
  - Generalised oedema [None]
  - Pleural effusion [None]
  - Fatigue [None]
  - Dyspnoea [None]
